FAERS Safety Report 10195383 (Version 3)
Quarter: 2014Q3

REPORT INFORMATION
  Report Type: Report from Study
  Country: ZA (occurrence: ZA)
  Receive Date: 20140526
  Receipt Date: 20140707
  Transmission Date: 20150326
  Serious: Yes (Other)
  Sender: FDA-Public Use
  Company Number: PHHY2011ZA74167

PATIENT
  Age: 77 Year
  Sex: Female

DRUGS (6)
  1. ACLASTA [Suspect]
     Active Substance: ZOLEDRONIC ACID
     Indication: OSTEOPOROSIS
     Dosage: 5 MG, YEARLY
     Route: 042
     Dates: start: 200704
  2. ACLASTA [Suspect]
     Active Substance: ZOLEDRONIC ACID
     Dosage: 5 MG, YEARLY
     Route: 042
     Dates: start: 201304, end: 2013
  3. ACLASTA [Suspect]
     Active Substance: ZOLEDRONIC ACID
     Dosage: 5 MG, YEARLY
     Route: 042
     Dates: start: 201105
  4. ACLASTA [Suspect]
     Active Substance: ZOLEDRONIC ACID
     Dosage: 5 MG, YEARLY
     Route: 042
  5. ACLASTA [Suspect]
     Active Substance: ZOLEDRONIC ACID
     Dosage: 5 MG, YEARLY
     Route: 042
  6. ACLASTA [Suspect]
     Active Substance: ZOLEDRONIC ACID
     Dosage: 5 MG, YEARLY
     Route: 042

REACTIONS (4)
  - Bone density increased [Unknown]
  - Dislocation of vertebra [Unknown]
  - Malaise [Unknown]
  - Back pain [Not Recovered/Not Resolved]
